FAERS Safety Report 16429855 (Version 1)
Quarter: 2019Q2

REPORT INFORMATION
  Report Type: Spontaneous
  Country: NL (occurrence: NL)
  Receive Date: 20190614
  Receipt Date: 20190614
  Transmission Date: 20190711
  Serious: Yes (Life-Threatening)
  Sender: FDA-Public Use
  Company Number: NL-TEVA-2019-NL-1062404

PATIENT
  Age: 63 Year
  Sex: Male
  Weight: 58 kg

DRUGS (6)
  1. PERINDOPRIL TABLET 2,5MG [Concomitant]
     Dosage: 2 MILLIGRAM DAILY; 1DD1
  2. SPIRONOLACTON TABLET 25MG [Concomitant]
     Active Substance: SPIRONOLACTONE
     Dosage: 25 MILLIGRAM DAILY; 1DD1
  3. ALFUZOSINE TABLET MGA 10MG [Concomitant]
     Dosage: 10 MILLIGRAM DAILY; 1DD1
  4. METHADON TABLET 25MG [Concomitant]
     Dosage: 2DD
  5. ALLOPURINOL. [Suspect]
     Active Substance: ALLOPURINOL
     Indication: GOUT
     Dosage: 100 MILLIGRAM DAILY; 1DD1
     Dates: start: 20190426, end: 20190517
  6. FUROSEMIDE TABLER 20MG [Concomitant]
     Dosage: 2DD1

REACTIONS (3)
  - Hepatic function abnormal [Not Recovered/Not Resolved]
  - Stevens-Johnson syndrome [Not Recovered/Not Resolved]
  - Renal impairment [Not Recovered/Not Resolved]

NARRATIVE: CASE EVENT DATE: 201905
